FAERS Safety Report 5729872-5 (Version None)
Quarter: 2008Q2

REPORT INFORMATION
  Report Type: 
  Country: None (occurrence: None)
  Receive Date: 20080502
  Receipt Date: 20080424
  Transmission Date: 20081010
  Serious: Yes (Other)
  Sender: FDA-Public Use
  Company Number: CHPA2008US07173

PATIENT
  Age: 47 Year
  Sex: Female
  Weight: 77.1 kg

DRUGS (4)
  1. MAALOX MS TOTAL STOMACH RELIEF (NCH)(BISMUTH SUBSALICYLATE) SUSPENSION [Suspect]
     Indication: NAUSEA
     Dosage: 2 TSP EVERY 1/2 HOUR, ORAL
     Route: 048
     Dates: start: 20080422, end: 20080424
  2. LORTAB [Concomitant]
  3. WELLBUTRIN [Concomitant]
  4. EFFEXOR [Concomitant]

REACTIONS (2)
  - FAECES DISCOLOURED [None]
  - MELAENA [None]
